FAERS Safety Report 6245473-7 (Version None)
Quarter: 2009Q2

REPORT INFORMATION
  Report Type: 
  Country: None (occurrence: None)
  Receive Date: 20090625
  Receipt Date: 20090623
  Transmission Date: 20091009
  Serious: Yes (Death)
  Sender: FDA-Public Use
  Company Number: PHHY2009MX21372

PATIENT
  Age: 67 Year
  Sex: Female

DRUGS (1)
  1. EXFORGE [Suspect]
     Indication: HYPERTENSION
     Dosage: 3 DF/DAY
     Route: 048
     Dates: start: 20080801

REACTIONS (1)
  - CARDIO-RESPIRATORY ARREST [None]
